FAERS Safety Report 10224558 (Version 1)
Quarter: 2014Q1

REPORT INFORMATION
  Report Type: Spontaneous
  Country: US (occurrence: None)
  Receive Date: 20140306
  Receipt Date: 20140306
  Transmission Date: 20141002
  Serious: Yes (Hospitalization)
  Sender: FDA-Public Use
  Company Number: 163-21880-13112236

PATIENT
  Age: 69 Year
  Sex: Female

DRUGS (22)
  1. REVLIMID (LENALIDOMIDE) (CAPSULES) [Suspect]
     Indication: PRODUCT USED FOR UNKNOWN INDICATION
     Route: 048
     Dates: start: 20130219, end: 20130311
  2. SAR650984 [Suspect]
     Indication: PRODUCT USED FOR UNKNOWN INDICATION
     Dates: start: 20130219, end: 20130219
  3. DEXAMETHASONE (DEXAMETHASONE) [Suspect]
     Indication: PRODUCT USED FOR UNKNOWN INDICATION
     Route: 048
     Dates: start: 20130219
  4. CETIRIZINE (CETIRIZINE) [Concomitant]
  5. CALCIUM (CALCIUM) [Concomitant]
  6. CYMBALTA [Concomitant]
  7. METOPROLOL (METOPROLOL) [Concomitant]
  8. NORVASC (AMLODIPINE BESILATE) [Concomitant]
  9. NORMAL SALINE (SODIUM CHLORIDE) [Concomitant]
  10. ACETAMINOPHEN (PARACETAMOL) [Concomitant]
  11. RANITIDINE (RANITIDINE) [Concomitant]
  12. PLASMA-LYTE (PLASMA-LYTE) [Concomitant]
  13. LIDOCAINE (LIDOCAINE) [Concomitant]
  14. PROPOFOL (PROPOFOL) [Concomitant]
  15. PREPARATION H (PREPARATION H /ISR/) [Concomitant]
  16. NEUPOGEN (FILGRASTIM) [Concomitant]
  17. DOXYCYCLINE (DOXYCYCLINE) [Concomitant]
  18. CIPRO (CIPROFLOXACIN) [Concomitant]
  19. LEVAQUIN (LEVOFLOXACIN) [Concomitant]
  20. MUCINEX (GUAIFENESIN) [Concomitant]
  21. OMEPRAZOLE (OMEPRAZOLE) [Concomitant]
  22. FAMOTIDINE (FAMOTIDINE) [Concomitant]

REACTIONS (1)
  - Febrile neutropenia [None]
